FAERS Safety Report 10832606 (Version 1)
Quarter: 2015Q1

REPORT INFORMATION
  Report Type: Report from Study
  Country: US (occurrence: US)
  Receive Date: 20150219
  Receipt Date: 20150219
  Transmission Date: 20150721
  Serious: No
  Sender: FDA-Public Use
  Company Number: US-ABBVIE-14P-163-1196586-00

PATIENT
  Sex: Male
  Weight: 90.8 kg

DRUGS (4)
  1. ZYRTEC [Concomitant]
     Active Substance: CETIRIZINE HYDROCHLORIDE
     Indication: HYPERSENSITIVITY
  2. HUMIRA [Suspect]
     Active Substance: ADALIMUMAB
     Indication: PSORIASIS
     Dosage: ONCE
     Dates: start: 201305, end: 201305
  3. HUMIRA [Suspect]
     Active Substance: ADALIMUMAB
     Dates: start: 201305
  4. HUMIRA [Suspect]
     Active Substance: ADALIMUMAB
     Dates: end: 201308

REACTIONS (1)
  - Drug ineffective [Recovered/Resolved]

NARRATIVE: CASE EVENT DATE: 2013
